FAERS Safety Report 7290430-5 (Version None)
Quarter: 2011Q1

REPORT INFORMATION
  Report Type: 
  Country: None (occurrence: None)
  Receive Date: 20110214
  Receipt Date: 20110203
  Transmission Date: 20110831
  Serious: Yes (Other)
  Sender: FDA-Public Use
  Company Number: FR-SANOFI-AVENTIS-2010SA077198

PATIENT
  Age: 75 Year
  Sex: Male

DRUGS (8)
  1. MULTAQ [Suspect]
     Route: 048
     Dates: start: 20101118
  2. SIMVASTATIN [Concomitant]
  3. ALLOPURINOL [Concomitant]
  4. PERMIXON [Concomitant]
  5. ART [Concomitant]
  6. PREVISCAN [Concomitant]
  7. MICARDIS [Concomitant]
  8. BUDESONIDE/FORMOTEROL [Concomitant]

REACTIONS (2)
  - ELECTROCARDIOGRAM QT PROLONGED [None]
  - VENTRICULAR EXTRASYSTOLES [None]
